FAERS Safety Report 4538479-7 (Version None)
Quarter: 2004Q4

REPORT INFORMATION
  Report Type: 
  Country: None (occurrence: None)
  Receive Date: 20041227
  Receipt Date: 20041216
  Transmission Date: 20050328
  Serious: Yes (Other)
  Sender: FDA-Public Use
  Company Number: CA-JNJFOC-20041200901

PATIENT
  Sex: Female
  Weight: 70.3 kg

DRUGS (4)
  1. REMINYL [Suspect]
     Route: 049
  2. HYDROCHLOROTHIAZIDE [Concomitant]
     Indication: HYPERTENSION
  3. ACEBUTOLOL [Concomitant]
     Indication: HYPERTENSION
  4. CELEXA [Concomitant]
     Indication: DEPRESSION

REACTIONS (2)
  - PARANOIA [None]
  - PSYCHOTIC DISORDER [None]
